FAERS Safety Report 9112285 (Version 2)
Quarter: 2014Q1

REPORT INFORMATION
  Report Type: Spontaneous
  Country: US (occurrence: US)
  Receive Date: 20130219
  Receipt Date: 20140213
  Transmission Date: 20141002
  Serious: No
  Sender: FDA-Public Use
  Company Number: US-BRISTOL-MYERS SQUIBB COMPANY-17043605

PATIENT
  Age: 66 Year
  Sex: Female
  Weight: 76.64 kg

DRUGS (6)
  1. ORENCIA [Suspect]
     Indication: RHEUMATOID ARTHRITIS
     Dosage: LAST INF: SEP2012, 3 WEEKS FROM TODAY, 15OCT2012
     Route: 042
  2. PLAQUENIL [Concomitant]
  3. LODINE [Concomitant]
     Indication: PAIN
  4. METHOTREXATE SODIUM INJ [Concomitant]
     Dosage: INJ
  5. LASIX [Concomitant]
  6. VITAMINS [Concomitant]

REACTIONS (2)
  - Joint swelling [Not Recovered/Not Resolved]
  - Fluid retention [Not Recovered/Not Resolved]
